FAERS Safety Report 9472319 (Version 1)
Quarter: 2013Q3

REPORT INFORMATION
  Report Type: Spontaneous
  Country: GB (occurrence: GB)
  Receive Date: 20130823
  Receipt Date: 20130823
  Transmission Date: 20140515
  Serious: Yes (Death)
  Sender: FDA-Public Use
  Company Number: GB-OTSUKA-EU-2013-10201

PATIENT
  Sex: 0

DRUGS (2)
  1. SAMSCA [Suspect]
     Indication: HYPONATRAEMIA
     Dosage: UNK, UNKNOWN
     Route: 048
  2. SAMSCA [Suspect]
     Indication: CARDIAC FAILURE

REACTIONS (2)
  - Death [Fatal]
  - Off label use [Unknown]
